FAERS Safety Report 25451000 (Version 1)
Quarter: 2025Q2

REPORT INFORMATION
  Report Type: Spontaneous
  Country: DE (occurrence: DE)
  Receive Date: 20250618
  Receipt Date: 20250618
  Transmission Date: 20250717
  Serious: Yes (Other)
  Sender: PFIZER
  Company Number: DE-ABBVIE-6321662

PATIENT
  Age: 63 Year
  Sex: Female

DRUGS (2)
  1. ADALIMUMAB [Suspect]
     Active Substance: ADALIMUMAB
     Indication: Adenosine deaminase 2 deficiency
     Route: 058
  2. DAPSONE [Suspect]
     Active Substance: DAPSONE
     Indication: Adenosine deaminase 2 deficiency
     Route: 061

REACTIONS (4)
  - Necrosis [Unknown]
  - Injection site erythema [Unknown]
  - Haemorrhage [Unknown]
  - Off label use [Unknown]
